FAERS Safety Report 4485344-X (Version None)
Quarter: 2004Q3

REPORT INFORMATION
  Report Type: 
  Country: None (occurrence: None)
  Receive Date: 20040921
  Receipt Date: 20040426
  Transmission Date: 20050211
  Serious: Yes (Hospitalization)
  Sender: FDA-Public Use
  Company Number: 163-20785-0400681

PATIENT
  Age: 68 Year
  Sex: Male
  Weight: 84 kg

DRUGS (13)
  1. THALOMID [Suspect]
     Indication: MULTIPLE MYELOMA
     Dosage: 100 MG, QHS, ORAL; 150-200MG, QHS, ORAL
     Route: 048
     Dates: start: 20021121, end: 20030728
  2. THALOMID [Suspect]
     Indication: MULTIPLE MYELOMA
     Dosage: 100 MG, QHS, ORAL; 150-200MG, QHS, ORAL
     Route: 048
     Dates: start: 20030729
  3. DOXIL [Suspect]
     Indication: MULTIPLE MYELOMA
     Dosage: 80 MG, INTRAVENOUS
     Route: 042
     Dates: start: 20021121, end: 20030729
  4. VINCRISTINE [Suspect]
     Indication: MULTIPLE MYELOMA
     Dosage: 2 MG, INTRAVENOUS
     Route: 042
     Dates: start: 20021121, end: 20030729
  5. DECADRON [Suspect]
     Indication: MULTIPLE MYELOMA
     Dosage: 40 MG, X4 DAYS, ORAL
     Route: 048
     Dates: start: 20021121, end: 20030729
  6. PREDNISONE [Suspect]
     Indication: MULTIPLE MYELOMA
     Dosage: QOD
     Dates: start: 20030729
  7. FLONASE [Concomitant]
  8. HUMIBID (GUAIFENESIN) [Concomitant]
  9. ACETYLSALICYLIC ACID SRT [Concomitant]
  10. PROCRIT [Concomitant]
  11. ALDACTONE (SPIRINOLACTONE) [Concomitant]
  12. LISINOPRIL W/HYDROCHLOROTHIAZIDE (PRINZIDE) [Concomitant]
  13. HYDROCHLOROTHIAZIDE [Concomitant]

REACTIONS (3)
  - ATRIAL FIBRILLATION [None]
  - DIVERTICULAR PERFORATION [None]
  - DIVERTICULITIS [None]
